FAERS Safety Report 4957398-5 (Version None)
Quarter: 2006Q1

REPORT INFORMATION
  Report Type: 
  Country: None (occurrence: None)
  Receive Date: 20060327
  Receipt Date: 20060315
  Transmission Date: 20060701
  Serious: Yes (Hospitalization)
  Sender: FDA-Public Use
  Company Number: 2006036156

PATIENT
  Sex: Female
  Weight: 54.4316 kg

DRUGS (2)
  1. BENADRYL [Suspect]
     Indication: RASH
     Dosage: 2 KAPSEALS 3 X A DAY, ORAL
     Route: 048
     Dates: start: 19860101
  2. ANTIBIOTICS [Concomitant]

REACTIONS (5)
  - BLISTER [None]
  - CONDITION AGGRAVATED [None]
  - DRUG INEFFECTIVE [None]
  - PAIN [None]
  - URTICARIA [None]
